FAERS Safety Report 16766559 (Version 1)
Quarter: 2019Q4

REPORT INFORMATION
  Report Type: Spontaneous
  Country: US (occurrence: US)
  Receive Date: 20190831
  Receipt Date: 20190831
  Transmission Date: 20200122
  Serious: Yes (Life-Threatening, Hospitalization, Disabling, Other)
  Sender: FDA-Public Use
  Company Number: None

PATIENT
  Age: 23 Year
  Sex: Female
  Weight: 74.25 kg

DRUGS (2)
  1. IBUPROFEN. [Suspect]
     Active Substance: IBUPROFEN
     Indication: PAIN
     Dosage: ?          QUANTITY:1 CAPSULE(S);?
     Route: 048
     Dates: start: 20190315, end: 20190525
  2. FENTANYL TRANSDERMAL SYSTEM [Concomitant]
     Active Substance: FENTANYL

REACTIONS (9)
  - Therapy cessation [None]
  - Suicide attempt [None]
  - Bedridden [None]
  - Pain [None]
  - Renal necrosis [None]
  - Victim of crime [None]
  - Mental disorder [None]
  - Drug withdrawal syndrome [None]
  - Contraindicated product prescribed [None]

NARRATIVE: CASE EVENT DATE: 20190315
